FAERS Safety Report 5978265-4 (Version None)
Quarter: 2008Q4

REPORT INFORMATION
  Report Type: 
  Country: None (occurrence: None)
  Receive Date: 20081126
  Receipt Date: 20081114
  Transmission Date: 20090506
  Serious: Yes (Other)
  Sender: FDA-Public Use
  Company Number: DSU-2008-01409

PATIENT
  Age: 74 Year
  Sex: Female
  Weight: 72.5755 kg

DRUGS (11)
  1. WELCHOL [Suspect]
     Indication: FAECAL INCONTINENCE
     Dosage: 2500 MG (1250 MG, BID), PER ORAL
     Route: 048
     Dates: start: 20070303
  2. COREG (CARVEDILOL) (25 MILLIGRAM) (CARVEDILOL) [Concomitant]
  3. COZAAR (LOSARTAN POTASSIUM) (50 MILLIGRAM) (LOSARTAN POTASSIUM) [Concomitant]
  4. MECLIZINE (MECLOZINE) (12.5 MILLIGRAM) (MECLOZINE) [Concomitant]
  5. PLAVIX (CLOPIDOGREL SULFATE) (75 MILLIGRAM) (CLOPIDOGREL SULFATE) [Concomitant]
  6. SPIRONOLACTONE (SPIRONOLACTONE) (25 MILLIGRAM) (SPIRONOLACTONE) [Concomitant]
  7. OMEPRAZOLE (OMEPRAZOLE) (20 MILLIGRAM) (OMEPRAZOLE) [Concomitant]
  8. ASPIRIN (ACETYLSALICYLIC ACID) (81 MILLIGRAM) (ACETYLSALICYLIC ACID) [Concomitant]
  9. SIMVASTATIN (SIMVASTATIN) (80 MILLIGRAM) (SIMVASTATIN) [Concomitant]
  10. PREMARIN (ESTROGENS CONJUGATED) (0.3 MILLIGRAM) (ESTROGENS CONJUGATED) [Concomitant]
  11. VITAMIN D (ERGOCALCIFEROL) (5000 IU (INTERNATIONAL UNIT), CAPSULE) (ER [Concomitant]

REACTIONS (4)
  - CHEST PAIN [None]
  - DYSPHAGIA [None]
  - FOREIGN BODY TRAUMA [None]
  - OESOPHAGEAL SPASM [None]
